FAERS Safety Report 7493260-4 (Version None)
Quarter: 2011Q2

REPORT INFORMATION
  Report Type: 
  Country: None (occurrence: None)
  Receive Date: 20110520
  Receipt Date: 20110509
  Transmission Date: 20111010
  Serious: Yes (Hospitalization)
  Sender: FDA-Public Use
  Company Number: US-AMGEN-USASP2011024070

PATIENT
  Sex: Female

DRUGS (1)
  1. SENSIPAR [Suspect]
     Indication: DIALYSIS
     Dosage: 60 MG, QD

REACTIONS (4)
  - HOSPITALISATION [None]
  - OEDEMA PERIPHERAL [None]
  - BLOOD CALCIUM INCREASED [None]
  - GAIT DISTURBANCE [None]
